FAERS Safety Report 5562502-4 (Version None)
Quarter: 2007Q4

REPORT INFORMATION
  Report Type: 
  Country: None (occurrence: None)
  Receive Date: 20071217
  Receipt Date: 20071211
  Transmission Date: 20080405
  Serious: Yes (Hospitalization)
  Sender: FDA-Public Use
  Company Number: FR-WYE-G00754107

PATIENT
  Sex: Male
  Weight: 19 kg

DRUGS (2)
  1. ADVIL [Suspect]
     Indication: PYREXIA
     Dosage: ONE DOSE FORM EVERY 6 HOURS A DAY
     Route: 048
     Dates: start: 20071015, end: 20071105
  2. ACETAMINOPHEN [Suspect]
     Indication: PYREXIA
     Dosage: ONE DOSE FORM EVERY 6 HOURS A DAY
     Route: 048
     Dates: start: 20071015

REACTIONS (5)
  - C-REACTIVE PROTEIN INCREASED [None]
  - DEHYDRATION [None]
  - GASTROENTERITIS [None]
  - RENAL FAILURE [None]
  - SEPSIS [None]
